FAERS Safety Report 15612957 (Version 1)
Quarter: 2018Q4

REPORT INFORMATION
  Report Type: Spontaneous
  Country: IT (occurrence: IT)
  Receive Date: 20181113
  Receipt Date: 20181113
  Transmission Date: 20190205
  Serious: Yes (Other)
  Sender: FDA-Public Use
  Company Number: IT-PFIZER INC-2018462166

PATIENT
  Age: 73 Year
  Sex: Female

DRUGS (12)
  1. IBRANCE [Suspect]
     Active Substance: PALBOCICLIB
     Indication: BREAST CANCER
     Dosage: 125 MG, 1X/DAY
     Route: 048
     Dates: start: 20171222
  2. ZOLEDRONIC ACID MYLAN [Concomitant]
     Active Substance: ZOLEDRONIC ACID
  3. EFIENT [Concomitant]
     Active Substance: PRASUGREL HYDROCHLORIDE
  4. TORVAST [Concomitant]
     Active Substance: ATORVASTATIN
  5. ANASTROZOLE. [Concomitant]
     Active Substance: ANASTROZOLE
     Dates: start: 20171221, end: 20180413
  6. FASLODEX [Concomitant]
     Active Substance: FULVESTRANT
  7. CARDIOASPIRIN [Concomitant]
     Active Substance: ASPIRIN
  8. LIMPIDEX [Concomitant]
     Active Substance: LANSOPRAZOLE
  9. CYMBALTA [Concomitant]
     Active Substance: DULOXETINE HYDROCHLORIDE
  10. DIBASE [Concomitant]
     Active Substance: CHOLECALCIFEROL
  11. COTAREG [Concomitant]
     Active Substance: HYDROCHLOROTHIAZIDE\VALSARTAN
  12. BISOPROLOL FUMARATE. [Concomitant]
     Active Substance: BISOPROLOL FUMARATE

REACTIONS (5)
  - Thrombocytopenia [Unknown]
  - Anaemia [Unknown]
  - Hypertransaminasaemia [Unknown]
  - Neutropenia [Unknown]
  - Asthenia [Unknown]

NARRATIVE: CASE EVENT DATE: 20180104
